FAERS Safety Report 13912624 (Version 2)
Quarter: 2017Q4

REPORT INFORMATION
  Report Type: Report from Study
  Country: JP (occurrence: JP)
  Receive Date: 20170828
  Receipt Date: 20171124
  Transmission Date: 20180320
  Serious: Yes (Death, Life-Threatening, Other)
  Sender: FDA-Public Use
  Company Number: PHHY2008JP046602

PATIENT
  Age: 63 Year
  Sex: Male
  Weight: 44 kg

DRUGS (28)
  1. NEUTROGIN [Concomitant]
     Active Substance: LENOGRASTIM
     Indication: PRODUCT USED FOR UNKNOWN INDICATION
     Dosage: UNK
     Route: 051
     Dates: start: 20080628
  2. ITRIZOLE [Concomitant]
     Active Substance: ITRACONAZOLE
     Indication: PNEUMONIA
     Dosage: 200 MG, QD
     Route: 041
     Dates: start: 20080619, end: 20080621
  3. CYTARABINE. [Concomitant]
     Active Substance: CYTARABINE
     Indication: NEOPLASM MALIGNANT
     Route: 042
     Dates: start: 20071016, end: 20071020
  4. NEUART [Concomitant]
     Active Substance: ANTITHROMBIN III HUMAN
     Indication: DISSEMINATED INTRAVASCULAR COAGULATION
     Dosage: 1500 IU,
     Route: 041
     Dates: start: 20080620, end: 20080620
  5. NEUART [Concomitant]
     Active Substance: ANTITHROMBIN III HUMAN
     Dosage: 1500 IU,
     Route: 041
     Dates: start: 20080626, end: 20080626
  6. ARRANON [Suspect]
     Active Substance: NELARABINE
     Indication: T-CELL TYPE ACUTE LEUKAEMIA
     Dosage: 1500 MG/KG, QD
     Route: 041
     Dates: start: 20080623, end: 20080623
  7. DOBUTREX [Concomitant]
     Active Substance: DOBUTAMINE HYDROCHLORIDE
     Indication: SEPTIC SHOCK
     Dosage: UNK
     Route: 041
     Dates: start: 20080624
  8. FLORID [Concomitant]
     Active Substance: MICONAZOLE
     Indication: OROPHARYNGITIS FUNGAL
     Route: 050
     Dates: start: 20080620, end: 20080701
  9. FAMOSTAGINE [Concomitant]
     Active Substance: FAMOTIDINE
     Indication: PROPHYLAXIS AGAINST GASTROINTESTINAL ULCER
     Route: 048
     Dates: start: 20080619, end: 20080625
  10. LOXONIN [Concomitant]
     Active Substance: LOXOPROFEN SODIUM
     Indication: PRODUCT USED FOR UNKNOWN INDICATION
     Route: 048
     Dates: start: 20080620, end: 20080701
  11. ARRANON [Suspect]
     Active Substance: NELARABINE
     Dosage: 1500 MG/KG, QD
     Route: 041
     Dates: start: 20080627, end: 20080627
  12. PANABATE [Concomitant]
     Indication: DISSEMINATED INTRAVASCULAR COAGULATION
     Dosage: 1500 MG,
     Route: 041
     Dates: start: 20080620
  13. ZYLORIC [Concomitant]
     Active Substance: ALLOPURINOL
     Indication: HYPERURICAEMIA
     Route: 048
     Dates: start: 20080619, end: 20080625
  14. CYTARABINE. [Concomitant]
     Active Substance: CYTARABINE
     Dosage: UNK
     Route: 042
     Dates: start: 20071122, end: 20071126
  15. FUNGIZONE [Concomitant]
     Active Substance: AMPHOTERICIN B
     Indication: PNEUMONIA
     Dosage: 5 MG, QD
     Route: 041
     Dates: start: 20080621, end: 20080621
  16. INOVAN [Concomitant]
     Active Substance: DOPAMINE HYDROCHLORIDE
     Indication: SEPTIC SHOCK
     Dosage: UNK
     Route: 042
     Dates: start: 20080620
  17. CRAVIT [Concomitant]
     Active Substance: LEVOFLOXACIN
     Indication: ENTERITIS INFECTIOUS
     Dosage: 200 MG, BID
     Route: 048
     Dates: start: 20080620, end: 20080625
  18. BAKTAR [Concomitant]
     Active Substance: SULFAMETHOXAZOLE\TRIMETHOPRIM
     Indication: ANTIFUNGAL PROPHYLAXIS
     Route: 048
     Dates: start: 20080619, end: 20080701
  19. RHYTHMY [Concomitant]
     Active Substance: RILMAZAFONE HYDROCHLORIDE
     Indication: INSOMNIA
     Route: 048
     Dates: start: 20080621, end: 20080621
  20. FUNGIZONE [Concomitant]
     Active Substance: AMPHOTERICIN B
     Dosage: 10 MG, QD
     Route: 041
     Dates: start: 20080621, end: 20080627
  21. FUNGIZONE [Concomitant]
     Active Substance: AMPHOTERICIN B
     Dosage: 15 MG, QD
     Route: 041
     Dates: start: 20080628, end: 20080701
  22. TAZOCIN [Concomitant]
     Active Substance: PIPERACILLIN SODIUM\TAZOBACTAM SODIUM
     Indication: PNEUMONIA
     Dosage: 2.5 G, BID
     Route: 041
     Dates: start: 20080628, end: 20080701
  23. ARRANON [Suspect]
     Active Substance: NELARABINE
     Dosage: 1500 MG/KG, QD
     Route: 041
     Dates: start: 20080625, end: 20080625
  24. MAXIPIME [Concomitant]
     Active Substance: CEFEPIME HYDROCHLORIDE
     Indication: PNEUMONIA
     Dosage: 2 G, BID
     Route: 041
     Dates: start: 20080620, end: 20080627
  25. NEUART [Concomitant]
     Active Substance: ANTITHROMBIN III HUMAN
     Dosage: 1500 IU,
     Route: 041
     Dates: start: 20080622, end: 20080622
  26. PENTCILLIN [Concomitant]
     Active Substance: PIPERACILLIN SODIUM
     Indication: PNEUMONIA
     Dosage: 2 G, BID
     Route: 041
     Dates: start: 20080619, end: 20080620
  27. TEICOPLANIN [Concomitant]
     Active Substance: TEICOPLANIN
     Indication: PRODUCT USED FOR UNKNOWN INDICATION
     Route: 041
     Dates: start: 20080621, end: 20080701
  28. TARGOCID [Concomitant]
     Active Substance: TEICOPLANIN
     Indication: PNEUMONIA
     Dosage: 400 MG, QD
     Route: 041
     Dates: start: 20080621

REACTIONS (20)
  - Pulmonary haemorrhage [Fatal]
  - Haematocrit decreased [Unknown]
  - Haemoglobin decreased [Unknown]
  - Tremor [Not Recovered/Not Resolved]
  - Speech disorder [Unknown]
  - Arrhythmia [Unknown]
  - Hypotension [Fatal]
  - Sepsis [Fatal]
  - Disorientation [Recovered/Resolved]
  - Ventricular extrasystoles [Unknown]
  - Somnolence [Unknown]
  - Restlessness [Unknown]
  - Bone marrow failure [Not Recovered/Not Resolved]
  - Altered state of consciousness [Not Recovered/Not Resolved]
  - Respiratory arrest [Unknown]
  - Ventricular fibrillation [Unknown]
  - White blood cell count decreased [Unknown]
  - Productive cough [Unknown]
  - Platelet count decreased [Unknown]
  - Red blood cell count decreased [Unknown]

NARRATIVE: CASE EVENT DATE: 20080624
